FAERS Safety Report 14097360 (Version 1)
Quarter: 2017Q4

REPORT INFORMATION
  Report Type: Spontaneous
  Country: US (occurrence: US)
  Receive Date: 20171016
  Receipt Date: 20171016
  Transmission Date: 20180321
  Serious: No
  Sender: FDA-Public Use
  Company Number: US-AMGEN-USASP2016172133

PATIENT
  Age: 55 Year

DRUGS (1)
  1. PROLIA [Suspect]
     Active Substance: DENOSUMAB
     Indication: OSTEOPOROSIS
     Dosage: UNK
     Route: 065
     Dates: start: 201512

REACTIONS (7)
  - General physical health deterioration [Unknown]
  - Depression [Unknown]
  - Feeling abnormal [Unknown]
  - Bone pain [Unknown]
  - Fatigue [Unknown]
  - Constipation [Unknown]
  - Arthralgia [Unknown]

NARRATIVE: CASE EVENT DATE: 201612
